FAERS Safety Report 4383433-1 (Version None)
Quarter: 2004Q2

REPORT INFORMATION
  Report Type: 
  Country: None (occurrence: None)
  Receive Date: 20040618
  Receipt Date: 20040608
  Transmission Date: 20050107
  Serious: Yes (Hospitalization)
  Sender: FDA-Public Use
  Company Number: 200412822BCC

PATIENT
  Age: 45 Year
  Sex: Female

DRUGS (12)
  1. ALEVE [Suspect]
     Indication: PAIN
     Dates: end: 20040512
  2. QUILONORM RETARD (LITHIUM CARBONATE) [Suspect]
     Indication: AFFECTIVE DISORDER
     Dosage: 450 MG, TOTAL DAILY, ORAL
     Route: 048
     Dates: end: 20040512
  3. IBUPROFEN [Suspect]
     Indication: PAIN
     Dosage: 1200 MG, TOTAL DAILY, ORAL
     Route: 048
     Dates: end: 20040512
  4. SEROQUEL [Suspect]
     Indication: AFFECTIVE DISORDER
     Dosage: 25 MG, TOTAL DAILY, ORAL
     Route: 048
     Dates: end: 20040512
  5. BEKUNIS BISACODYL [Concomitant]
  6. NOVALGINE [Concomitant]
  7. ZELMAC [Concomitant]
  8. BUSCOPAN [Concomitant]
  9. DEMETRIN [Concomitant]
  10. ACETAMINOPHEN [Concomitant]
  11. SOLATRAN [Concomitant]
  12. XANAX [Concomitant]

REACTIONS (14)
  - ATAXIA [None]
  - BALANCE DISORDER [None]
  - DRUG ABUSER [None]
  - DRUG INTERACTION [None]
  - DRUG LEVEL INCREASED [None]
  - DRUG TOXICITY [None]
  - DYSARTHRIA [None]
  - DYSSTASIA [None]
  - HAEMOCONCENTRATION [None]
  - HAEMODIALYSIS [None]
  - NERVOUS SYSTEM DISORDER [None]
  - RENAL FAILURE ACUTE [None]
  - SOMNOLENCE [None]
  - URINE ANALYSIS ABNORMAL [None]
